FAERS Safety Report 20759710 (Version 1)
Quarter: 2022Q2

REPORT INFORMATION
  Report Type: Other
  Country: US (occurrence: None)
  Receive Date: 20220427
  Receipt Date: 20220427
  Transmission Date: 20220721
  Serious: Yes (Hospitalization)
  Sender: FDA-Public Use
  Company Number: US-ROCHE-3083998

PATIENT
  Age: 62 Year
  Sex: Male

DRUGS (1)
  1. VISMODEGIB [Suspect]
     Active Substance: VISMODEGIB
     Indication: Basal cell carcinoma metastatic
     Route: 065

REACTIONS (1)
  - Disease progression [Not Recovered/Not Resolved]
